FAERS Safety Report 22136639 (Version 1)
Quarter: 2023Q1

REPORT INFORMATION
  Report Type: Spontaneous
  Country: ES (occurrence: ES)
  Receive Date: 20230324
  Receipt Date: 20230324
  Transmission Date: 20230418
  Serious: Yes (Other)
  Sender: FDA-Public Use
  Company Number: ES-ASPEN-GLO2023EC001430

PATIENT
  Age: 69 Year
  Sex: Female

DRUGS (2)
  1. METFORMIN [Suspect]
     Active Substance: METFORMIN HYDROCHLORIDE
     Indication: Type 2 diabetes mellitus
     Dosage: UNK
     Route: 065
  2. PREDNISONE [Suspect]
     Active Substance: PREDNISONE
     Indication: Autoimmune pancreatitis
     Dosage: 5 MILLIGRAM, QD, 5 MG, 1 DOSE DAILY
     Route: 065

REACTIONS (2)
  - Pulmonary tuberculosis [Unknown]
  - Off label use [Unknown]
